FAERS Safety Report 7776960-8 (Version None)
Quarter: 2011Q3

REPORT INFORMATION
  Report Type: 
  Country: None (occurrence: None)
  Receive Date: 20110926
  Receipt Date: 20110912
  Transmission Date: 20111222
  Serious: No
  Sender: FDA-Public Use
  Company Number: US-B.I. PHARMACEUTICALS,INC./RIDGEFIELD-2011-BP-10638BP

PATIENT
  Sex: Male

DRUGS (12)
  1. NEURONTIN [Concomitant]
     Indication: NEUROPATHY PERIPHERAL
     Route: 048
  2. NEXIUM [Concomitant]
     Indication: GASTROOESOPHAGEAL REFLUX DISEASE
     Route: 048
  3. PRADAXA [Suspect]
     Indication: ATRIAL FIBRILLATION
     Dosage: 300 MG
     Route: 048
     Dates: start: 20110201
  4. ASPIRIN [Concomitant]
     Indication: ATRIAL FIBRILLATION
     Dosage: 81 NR
     Route: 048
  5. HYZAAR [Concomitant]
     Indication: HYPERTENSION
     Route: 048
  6. JANUVIA [Concomitant]
     Indication: DIABETES MELLITUS
     Route: 048
  7. TRAVATAN [Concomitant]
     Route: 047
  8. LOVASTATIN [Concomitant]
     Indication: HYPERCHOLESTEROLAEMIA
     Dosage: 40 MG
     Route: 048
  9. GLYBURIDE [Concomitant]
     Indication: DIABETES MELLITUS
     Dosage: 0.75 MG
     Route: 048
  10. FLONASE [Concomitant]
     Route: 045
  11. DARSYLITE (EYE DROPS) [Concomitant]
     Route: 047
  12. CYMBALTA [Concomitant]
     Indication: DEPRESSION
     Route: 048

REACTIONS (3)
  - HYPERHIDROSIS [None]
  - GASTROOESOPHAGEAL REFLUX DISEASE [None]
  - DYSPEPSIA [None]
